FAERS Safety Report 6595524-5 (Version None)
Quarter: 2010Q1

REPORT INFORMATION
  Report Type: 
  Country: None (occurrence: None)
  Receive Date: 20100223
  Receipt Date: 20100215
  Transmission Date: 20100710
  Serious: Yes (Other)
  Sender: FDA-Public Use
  Company Number: JP-JNJFOC-20090907231

PATIENT
  Sex: Male

DRUGS (5)
  1. TOPINA [Suspect]
     Indication: EPILEPSY
     Route: 048
     Dates: start: 20090421, end: 20090619
  2. TOPINA [Suspect]
     Route: 048
     Dates: start: 20090421, end: 20090619
  3. TOPINA [Suspect]
     Route: 048
     Dates: start: 20090421, end: 20090619
  4. SELENICA-R [Concomitant]
     Route: 048
  5. FOLIAMIN [Concomitant]
     Route: 065

REACTIONS (6)
  - CHEILITIS [None]
  - DECREASED APPETITE [None]
  - RHINITIS [None]
  - SPUTUM ABNORMAL [None]
  - STOMATITIS [None]
  - UPPER RESPIRATORY TRACT INFLAMMATION [None]
